FAERS Safety Report 9636988 (Version 1)
Quarter: 2013Q4

REPORT INFORMATION
  Report Type: Spontaneous
  Country: NL (occurrence: NL)
  Receive Date: 20131022
  Receipt Date: 20131022
  Transmission Date: 20140711
  Serious: Yes (Death)
  Sender: FDA-Public Use
  Company Number: NL-AMGEN-NLDSP2013073334

PATIENT
  Age: 55 Year
  Sex: Male

DRUGS (10)
  1. XGEVA [Suspect]
     Indication: PRODUCT USED FOR UNKNOWN INDICATION
     Dosage: UNK, Q4WK
     Route: 065
     Dates: start: 20130530
  2. PREDNISOLONE ACTAVIS [Concomitant]
     Dosage: 5 MG, UNK
  3. PIPAMPERON SANDOZ [Concomitant]
     Dosage: 40 MG, UNK
  4. MOLAXOLE [Concomitant]
  5. HYDROCOBAMINE [Concomitant]
     Dosage: 500 MUL/ML, UNK
  6. FOLIUMZUUR [Concomitant]
     Dosage: 0.5 MG, UNK
  7. FERROFUMARAAT [Concomitant]
     Dosage: 200 MG, UNK
  8. AMOXI-CLAV [Concomitant]
     Dosage: 500/125MG, UNK
  9. CALCI CHEW D3 [Concomitant]
     Dosage: 500 MG/400IE, UNK
  10. DEXAMETHASON                       /00016001/ [Concomitant]
     Dosage: 0.5 MG, UNK

REACTIONS (1)
  - Death [Fatal]
